FAERS Safety Report 11179819 (Version 2)
Quarter: 2015Q2

REPORT INFORMATION
  Report Type: Spontaneous
  Country: PL (occurrence: PL)
  Receive Date: 20150611
  Receipt Date: 20150618
  Transmission Date: 20150821
  Serious: Yes (Other)
  Sender: FDA-Public Use
  Company Number: PL-ROCHE-1591195

PATIENT
  Age: 35 Year
  Sex: Male

DRUGS (21)
  1. ENCORTON [Concomitant]
     Active Substance: PREDNISONE
     Route: 065
  2. CELLCEPT [Suspect]
     Active Substance: MYCOPHENOLATE MOFETIL\MYCOPHENOLATE MOFETIL HYDROCHLORIDE
     Indication: PRODUCT USED FOR UNKNOWN INDICATION
     Route: 065
  3. TACROLIMUS. [Concomitant]
     Active Substance: TACROLIMUS
     Route: 065
  4. MILURIT [Concomitant]
     Active Substance: ALLOPURINOL
     Route: 065
  5. VALCYTE [Suspect]
     Active Substance: VALGANCICLOVIR HYDROCHLORIDE
     Indication: PRODUCT USED FOR UNKNOWN INDICATION
     Route: 065
  6. TACROLIMUS. [Concomitant]
     Active Substance: TACROLIMUS
     Dosage: 3+2 MG
     Route: 065
  7. VALCYTE [Suspect]
     Active Substance: VALGANCICLOVIR HYDROCHLORIDE
     Route: 065
  8. BISEPTOL [Suspect]
     Active Substance: SULFAMETHOXAZOLE\TRIMETHOPRIM
     Indication: PRODUCT USED FOR UNKNOWN INDICATION
     Route: 065
  9. ACARD [Concomitant]
     Active Substance: ASPIRIN
     Route: 065
  10. CELLCEPT [Suspect]
     Active Substance: MYCOPHENOLATE MOFETIL\MYCOPHENOLATE MOFETIL HYDROCHLORIDE
     Route: 065
  11. ENCORTON [Concomitant]
     Active Substance: PREDNISONE
     Route: 065
  12. POLPRAZOL [Concomitant]
     Active Substance: OMEPRAZOLE
     Route: 065
  13. BISOCARD [Concomitant]
     Active Substance: BISOPROLOL
     Route: 065
  14. DOXAR [Concomitant]
     Route: 065
  15. NYSTATYNA [Concomitant]
     Dosage: 1 DOSE NOS
     Route: 065
  16. LACIPIL [Concomitant]
     Active Substance: LACIDIPINE
     Route: 065
  17. LACIPIL [Concomitant]
     Active Substance: LACIDIPINE
     Route: 065
  18. IPOREL [Concomitant]
     Active Substance: CLONIDINE
     Route: 065
  19. CALPEROS [Concomitant]
     Active Substance: CALCIUM CARBONATE
     Route: 065
  20. ALFADIOL [Concomitant]
     Active Substance: ALFACALCIDOL
     Route: 065
  21. ZOCOR [Concomitant]
     Active Substance: SIMVASTATIN
     Route: 065

REACTIONS (3)
  - Bone marrow toxicity [Recovering/Resolving]
  - Liver injury [Recovering/Resolving]
  - Leukopenia [Recovering/Resolving]
